FAERS Safety Report 4513764-3 (Version None)
Quarter: 2004Q4

REPORT INFORMATION
  Report Type: 
  Country: None (occurrence: None)
  Receive Date: 20041130
  Receipt Date: 20040607
  Transmission Date: 20050328
  Serious: Yes (Other)
  Sender: FDA-Public Use
  Company Number: US-GLAXOSMITHKLINE-A0513816A

PATIENT
  Age: 41 Year
  Sex: Female
  Weight: 56.8 kg

DRUGS (3)
  1. WELLBUTRIN [Suspect]
     Indication: DEPRESSION
     Route: 048
     Dates: start: 20031103, end: 20040301
  2. DEPAKOTE [Concomitant]
     Dosage: 1250MG PER DAY
     Route: 048
  3. KLONOPIN [Concomitant]
     Indication: ANXIETY DISORDER
     Dosage: .5MG THREE TIMES PER DAY
     Route: 048

REACTIONS (1)
  - CONVULSION [None]
